FAERS Safety Report 21776924 (Version 1)
Quarter: 2022Q4

REPORT INFORMATION
  Report Type: Report from Study
  Country: US (occurrence: US)
  Receive Date: 20221226
  Receipt Date: 20221226
  Transmission Date: 20230113
  Serious: No
  Sender: FDA-Public Use
  Company Number: US-ABBVIE-4210737

PATIENT
  Sex: Female

DRUGS (19)
  1. HUMIRA [Suspect]
     Active Substance: ADALIMUMAB
     Indication: Rheumatoid arthritis
     Dosage: FORM STRENGTH: 40 MILLIGRAM
     Route: 058
     Dates: start: 20170726
  2. LIDOCAINE 5% EXTRA [Concomitant]
     Indication: Product used for unknown indication
  3. PROMETHAZINE [Concomitant]
     Active Substance: PROMETHAZINE HYDROCHLORIDE
     Indication: Product used for unknown indication
  4. AMLODIPINE B TAB 10MG [Concomitant]
     Indication: Product used for unknown indication
  5. 60 mg Duloxetine HCL [Concomitant]
     Indication: Product used for unknown indication
  6. 0.5 mg Clonazepam [Concomitant]
     Indication: Product used for unknown indication
  7. 10 mg Atorvastatin calcium [Concomitant]
     Indication: Product used for unknown indication
  8. BUTALBITAL [Concomitant]
     Active Substance: BUTALBITAL
     Indication: Product used for unknown indication
  9. RESTASIS [Concomitant]
     Active Substance: CYCLOSPORINE
     Indication: Product used for unknown indication
  10. 50 mg Metoprolol tartrate [Concomitant]
     Indication: Product used for unknown indication
  11. DEXILANT [Concomitant]
     Active Substance: DEXLANSOPRAZOLE
     Indication: Product used for unknown indication
  12. LYRICA [Concomitant]
     Active Substance: PREGABALIN
     Indication: Product used for unknown indication
  13. AZITHROMYCIN [Concomitant]
     Active Substance: AZITHROMYCIN
     Indication: Product used for unknown indication
     Dosage: TAB 250MG
  14. METHOTREXATE [Concomitant]
     Active Substance: METHOTREXATE
     Indication: Product used for unknown indication
  15. LOSARTAN POTASSIUM [Concomitant]
     Active Substance: LOSARTAN POTASSIUM
     Indication: Product used for unknown indication
  16. 1000 mg Metformin HCL [Concomitant]
     Indication: Product used for unknown indication
  17. 750 mg Nabumetone [Concomitant]
     Indication: Product used for unknown indication
  18. 25 mg Hydroxyzine HCL [Concomitant]
     Indication: Product used for unknown indication
  19. 0.5 mg Ropinirole HCL [Concomitant]
     Indication: Product used for unknown indication

REACTIONS (1)
  - Illness [Recovered/Resolved]
